FAERS Safety Report 11741260 (Version 1)
Quarter: 2015Q4

REPORT INFORMATION
  Report Type: Spontaneous
  Country: US (occurrence: US)
  Receive Date: 20151116
  Receipt Date: 20151116
  Transmission Date: 20160304
  Serious: No
  Sender: FDA-Public Use
  Company Number: PHEH2015US022691

PATIENT
  Age: 36 Year
  Sex: Male

DRUGS (6)
  1. DESFERAL [Suspect]
     Active Substance: DEFEROXAMINE MESYLATE
     Indication: IRON OVERLOAD
     Route: 058
  2. TESTOSTERONE. [Concomitant]
     Active Substance: TESTOSTERONE
     Indication: PRODUCT USED FOR UNKNOWN INDICATION
     Route: 065
  3. OMEPRAZOLE. [Concomitant]
     Active Substance: OMEPRAZOLE
     Indication: PRODUCT USED FOR UNKNOWN INDICATION
     Route: 065
  4. LISINOPRIL. [Concomitant]
     Active Substance: LISINOPRIL
     Indication: PRODUCT USED FOR UNKNOWN INDICATION
     Route: 065
  5. EXJADE [Suspect]
     Active Substance: DEFERASIROX
     Indication: IRON OVERLOAD
     Route: 065
  6. ASPIRIN. [Concomitant]
     Active Substance: ASPIRIN
     Indication: PRODUCT USED FOR UNKNOWN INDICATION
     Route: 065

REACTIONS (3)
  - Nausea [Unknown]
  - Local reaction [Unknown]
  - Diarrhoea [Unknown]
